FAERS Safety Report 18973715 (Version 1)
Quarter: 2021Q1

REPORT INFORMATION
  Report Type: Spontaneous
  Country: US (occurrence: US)
  Receive Date: 20210305
  Receipt Date: 20210305
  Transmission Date: 20210420
  Serious: Yes (Death)
  Sender: FDA-Public Use
  Company Number: None

PATIENT
  Sex: Female

DRUGS (20)
  1. LISINOPRIL. [Concomitant]
     Active Substance: LISINOPRIL
  2. MULTIVITAMIN ADULT [Concomitant]
  3. OXYCODONE?ACETAMINOPHEN [Concomitant]
     Active Substance: ACETAMINOPHEN\OXYCODONE HYDROCHLORIDE
  4. MIRTAZAPINE. [Concomitant]
     Active Substance: MIRTAZAPINE
  5. CLONAZEPAM. [Concomitant]
     Active Substance: CLONAZEPAM
  6. TIZANIDINE HCL [Concomitant]
     Active Substance: TIZANIDINE HYDROCHLORIDE
  7. VITAMIN D3 COMPLETE [Concomitant]
  8. IBRANCE [Suspect]
     Active Substance: PALBOCICLIB
     Route: 048
  9. ALPRAZOLAM. [Concomitant]
     Active Substance: ALPRAZOLAM
  10. ASPIRIN 81 [Concomitant]
     Active Substance: ASPIRIN
  11. BELSOMRA [Concomitant]
     Active Substance: SUVOREXANT
  12. GABAPENTIN. [Concomitant]
     Active Substance: GABAPENTIN
  13. LORATADINE. [Concomitant]
     Active Substance: LORATADINE
  14. LETROZOLE. [Concomitant]
     Active Substance: LETROZOLE
  15. PAROXETINE HCL [Concomitant]
     Active Substance: PAROXETINE HYDROCHLORIDE
  16. QUETIAPINE FUMARATE. [Concomitant]
     Active Substance: QUETIAPINE FUMARATE
  17. VITAMIN C [Concomitant]
     Active Substance: ASCORBIC ACID
  18. AMBIEN [Concomitant]
     Active Substance: ZOLPIDEM TARTRATE
  19. OXYCODONE HYDROCHLORIDE. [Concomitant]
     Active Substance: OXYCODONE HYDROCHLORIDE
  20. BREO ELLIPTA [Concomitant]
     Active Substance: FLUTICASONE FUROATE\VILANTEROL TRIFENATATE

REACTIONS (1)
  - Death [None]

NARRATIVE: CASE EVENT DATE: 20210305
